FAERS Safety Report 6023517-5 (Version None)
Quarter: 2008Q4

REPORT INFORMATION
  Report Type: 
  Country: None (occurrence: None)
  Receive Date: 20081230
  Receipt Date: 20081219
  Transmission Date: 20090506
  Serious: Yes (Hospitalization)
  Sender: FDA-Public Use
  Company Number: PHHY2008JP31625

PATIENT
  Age: 51 Year
  Sex: Female

DRUGS (3)
  1. GLEEVEC [Suspect]
     Indication: GASTROINTESTINAL STROMAL TUMOUR
     Dosage: 400 MG / DAILY
     Route: 048
     Dates: start: 20041101
  2. GLEEVEC [Suspect]
     Dosage: 200 MG / DAILY
     Route: 048
  3. GLEEVEC [Suspect]
     Dosage: 400 MG / DAILY
     Route: 048

REACTIONS (13)
  - ABDOMINAL DISTENSION [None]
  - ABDOMINAL PAIN [None]
  - ANAEMIA [None]
  - BREAST CANCER [None]
  - BREAST MASS [None]
  - BREAST PAIN [None]
  - DRUG ERUPTION [None]
  - DYSPHAGIA [None]
  - HYPOPROTEINAEMIA [None]
  - MALIGNANT NEOPLASM PROGRESSION [None]
  - MALIGNANT TUMOUR EXCISION [None]
  - MASTECTOMY [None]
  - NEOPLASM [None]
